FAERS Safety Report 7366334-6 (Version None)
Quarter: 2011Q1

REPORT INFORMATION
  Report Type: 
  Country: None (occurrence: None)
  Receive Date: 20110322
  Receipt Date: 20110314
  Transmission Date: 20110831
  Serious: Yes (Hospitalization)
  Sender: FDA-Public Use
  Company Number: BR-ASTRAZENECA-2011SE14519

PATIENT
  Age: 49 Year
  Sex: Male
  Weight: 69 kg

DRUGS (2)
  1. ATACAND [Suspect]
     Indication: HYPERTENSION
     Route: 048
     Dates: start: 20080101, end: 20100101
  2. ATACAND [Suspect]
     Route: 048
     Dates: start: 20100101

REACTIONS (2)
  - VENOUS OCCLUSION [None]
  - BLOOD PRESSURE INADEQUATELY CONTROLLED [None]
